FAERS Safety Report 12175110 (Version 3)
Quarter: 2016Q2

REPORT INFORMATION
  Report Type: Spontaneous
  Country: JP (occurrence: JP)
  Receive Date: 20160314
  Receipt Date: 20160406
  Transmission Date: 20160815
  Serious: Yes (Death)
  Sender: FDA-Public Use
  Company Number: JP-ASTELLAS-2015JP025363

PATIENT
  Age: 67 Year
  Sex: Male
  Weight: 60 kg

DRUGS (15)
  1. ASPIRIN. [Concomitant]
     Active Substance: ASPIRIN
     Indication: ACUTE CORONARY SYNDROME
     Route: 048
     Dates: start: 201301
  2. ZETIA [Concomitant]
     Active Substance: EZETIMIBE
     Indication: ACUTE CORONARY SYNDROME
     Route: 048
  3. AZULFIDINE [Concomitant]
     Active Substance: SULFASALAZINE
     Route: 048
     Dates: start: 201305
  4. MICARDIS [Concomitant]
     Active Substance: TELMISARTAN
     Indication: ESSENTIAL HYPERTENSION
     Route: 048
  5. PROGRAF [Suspect]
     Active Substance: TACROLIMUS\TACROLIMUS ANHYDROUS
     Indication: RHEUMATOID ARTHRITIS
     Route: 048
     Dates: start: 201305
  6. AZULFIDINE [Concomitant]
     Active Substance: SULFASALAZINE
     Indication: RHEUMATOID ARTHRITIS
     Route: 048
     Dates: start: 201304, end: 201305
  7. MUCOSTA [Concomitant]
     Active Substance: REBAMIPIDE
     Route: 048
     Dates: start: 20130527, end: 2013
  8. MICARDIS [Concomitant]
     Active Substance: TELMISARTAN
     Indication: ACUTE CORONARY SYNDROME
  9. CELECOX [Concomitant]
     Active Substance: CELECOXIB
     Indication: RHEUMATOID ARTHRITIS
     Route: 048
     Dates: start: 20130405
  10. METHYCOBAL [Concomitant]
     Active Substance: METHYLCOBALAMIN
     Indication: RHEUMATOID ARTHRITIS
     Route: 048
     Dates: start: 201305
  11. MUCOSTA [Concomitant]
     Active Substance: REBAMIPIDE
     Indication: RHEUMATOID ARTHRITIS
     Route: 048
     Dates: start: 20130417, end: 20130526
  12. PLETAAL [Concomitant]
     Active Substance: CILOSTAZOL
     Indication: PERIPHERAL ARTERIAL OCCLUSIVE DISEASE
     Route: 048
  13. CRESTOR [Concomitant]
     Active Substance: ROSUVASTATIN CALCIUM
     Indication: ACUTE CORONARY SYNDROME
     Route: 048
  14. TAKEPRON [Concomitant]
     Active Substance: LANSOPRAZOLE
     Indication: ACUTE CORONARY SYNDROME
     Route: 048
  15. VOGLIBOSE [Concomitant]
     Active Substance: VOGLIBOSE
     Indication: TYPE 2 DIABETES MELLITUS
     Dosage: 0.3 MG, THRICE DAILY
     Route: 048

REACTIONS (3)
  - Malaise [Fatal]
  - Lymphadenopathy [Fatal]
  - Intentional product use issue [Unknown]

NARRATIVE: CASE EVENT DATE: 201305
